FAERS Safety Report 23840728 (Version 2)
Quarter: 2024Q2

REPORT INFORMATION
  Report Type: Spontaneous
  Country: US (occurrence: US)
  Receive Date: 20240510
  Receipt Date: 20240514
  Transmission Date: 20240716
  Serious: No
  Sender: FDA-Public Use
  Company Number: US-GSK-US2024055816

PATIENT
  Age: 58 Year
  Sex: Female
  Weight: 61.23 kg

DRUGS (16)
  1. BENLYSTA [Suspect]
     Active Substance: BELIMUMAB
     Indication: Systemic lupus erythematosus
     Dosage: UNK
     Dates: start: 20240414
  2. BENLYSTA [Suspect]
     Active Substance: BELIMUMAB
  3. BENLYSTA [Suspect]
     Active Substance: BELIMUMAB
     Indication: Systemic lupus erythematosus
     Dosage: UNK
     Dates: start: 20240414
  4. BENLYSTA [Suspect]
     Active Substance: BELIMUMAB
  5. BENLYSTA [Suspect]
     Active Substance: BELIMUMAB
  6. BENLYSTA [Suspect]
     Active Substance: BELIMUMAB
     Indication: Systemic lupus erythematosus
     Dosage: UNK
     Dates: start: 20240414
  7. BENLYSTA [Suspect]
     Active Substance: BELIMUMAB
  8. BENLYSTA [Suspect]
     Active Substance: BELIMUMAB
  9. BENLYSTA [Suspect]
     Active Substance: BELIMUMAB
  10. BENLYSTA [Suspect]
     Active Substance: BELIMUMAB
     Indication: Systemic lupus erythematosus
     Dosage: UNK
     Dates: start: 20240414
  11. BENLYSTA [Suspect]
     Active Substance: BELIMUMAB
  12. BENLYSTA [Suspect]
     Active Substance: BELIMUMAB
  13. BENLYSTA [Suspect]
     Active Substance: BELIMUMAB
  14. BENLYSTA [Suspect]
     Active Substance: BELIMUMAB
  15. BENLYSTA [Suspect]
     Active Substance: BELIMUMAB
     Indication: Systemic lupus erythematosus
     Dosage: 200 MG, WE
     Route: 058
  16. LAMICTAL [Concomitant]
     Active Substance: LAMOTRIGINE
     Indication: Seizure
     Dosage: 200 MG, QD
     Dates: start: 202405

REACTIONS (4)
  - Speech disorder [Recovering/Resolving]
  - Muscular weakness [Recovering/Resolving]
  - Product storage error [Unknown]
  - Product dose omission issue [Unknown]

NARRATIVE: CASE EVENT DATE: 20240424
